FAERS Safety Report 15788846 (Version 3)
Quarter: 2019Q1

REPORT INFORMATION
  Report Type: Spontaneous
  Country: JP (occurrence: JP)
  Receive Date: 20190104
  Receipt Date: 20190205
  Transmission Date: 20190417
  Serious: Yes (Other)
  Sender: FDA-Public Use
  Company Number: JP-009507513-1812JPN003768J

PATIENT
  Age: 69 Year
  Sex: Male

DRUGS (2)
  1. TRAMCET [Concomitant]
     Active Substance: ACETAMINOPHEN\TRAMADOL
     Route: 048
  2. KEYTRUDA [Suspect]
     Active Substance: PEMBROLIZUMAB
     Dosage: 200 MILLIGRAM, Q3W
     Route: 041
     Dates: start: 20181206, end: 20181206

REACTIONS (6)
  - Malignant neoplasm progression [Not Recovered/Not Resolved]
  - Cortisol decreased [Recovering/Resolving]
  - Adrenal disorder [Unknown]
  - Malaise [Not Recovered/Not Resolved]
  - Hypothalamo-pituitary disorder [Unknown]
  - Blood corticotrophin decreased [Recovering/Resolving]

NARRATIVE: CASE EVENT DATE: 201812
